FAERS Safety Report 7688285-X (Version None)
Quarter: 2011Q3

REPORT INFORMATION
  Report Type: 
  Country: None (occurrence: None)
  Receive Date: 20110817
  Receipt Date: 20110114
  Transmission Date: 20111222
  Serious: No
  Sender: FDA-Public Use
  Company Number: GB-KINGPHARMUSA00001-K201000215

PATIENT
  Age: 44 Year
  Sex: Female
  Weight: 48.98 kg

DRUGS (3)
  1. HYDROCORTISONE [Concomitant]
     Indication: ADRENAL INSUFFICIENCY
     Dosage: UNK
  2. CYTOMEL [Suspect]
     Indication: HYPOTHYROIDISM
     Dosage: 50 MCG, QD
     Route: 048
     Dates: start: 20040101, end: 20100201
  3. MULTI-VITAMIN [Concomitant]
     Dosage: UNK

REACTIONS (6)
  - ACTIVITIES OF DAILY LIVING IMPAIRED [None]
  - HEART RATE DECREASED [None]
  - FEELING ABNORMAL [None]
  - MALAISE [None]
  - FATIGUE [None]
  - DRUG INEFFECTIVE [None]
